APPROVED DRUG PRODUCT: XENOVIEW
Active Ingredient: XENON XE-129 HYPERPOLARIZED
Strength: N/A
Dosage Form/Route: GAS;INHALATION
Application: N214375 | Product #001
Applicant: POLAREAN INC
Approved: Dec 23, 2022 | RLD: Yes | RS: Yes | Type: RX

PATENTS:
Patent 10583205 | Expires: Feb 20, 2035
Patent 11052161 | Expires: Dec 29, 2035

EXCLUSIVITY:
Code: NCE | Date: Dec 23, 2027